FAERS Safety Report 8724690 (Version 3)
Quarter: 2013Q3

REPORT INFORMATION
  Report Type: Spontaneous
  Country: US (occurrence: US)
  Receive Date: 20120815
  Receipt Date: 20130830
  Transmission Date: 20140515
  Serious: Yes (Hospitalization, Other)
  Sender: FDA-Public Use
  Company Number: US-PFIZER INC-2012195942

PATIENT
  Age: 46 Year
  Sex: Male
  Weight: 99.3 kg

DRUGS (4)
  1. NEURONTIN [Suspect]
     Indication: NEUROPATHY PERIPHERAL
     Dosage: 2400 MG, 2X/DAY
     Dates: start: 2000
  2. LYRICA [Suspect]
     Dosage: UNK
  3. AMITRIPTYLINE [Concomitant]
     Dosage: 30 MG, DAILY
  4. METOCLOPRAMIDE [Concomitant]
     Dosage: 10 MG, 2X/DAY

REACTIONS (5)
  - Diverticulitis [Unknown]
  - Suicidal ideation [Unknown]
  - Depression [Unknown]
  - Convulsion [Unknown]
  - Cardiac disorder [Unknown]
